FAERS Safety Report 15833536 (Version 1)
Quarter: 2019Q1

REPORT INFORMATION
  Report Type: Spontaneous
  Country: US (occurrence: US)
  Receive Date: 20190116
  Receipt Date: 20190116
  Transmission Date: 20190417
  Serious: No
  Sender: FDA-Public Use
  Company Number: None

PATIENT
  Age: 76 Year
  Sex: Male
  Weight: 85.5 kg

DRUGS (1)
  1. MULTIHANCE [Suspect]
     Active Substance: GADOBENATE DIMEGLUMINE
     Indication: FACIAL PAIN
     Dosage: ?          OTHER FREQUENCY:FOR MRI EXAM WITH;?
     Route: 042
     Dates: start: 20190103, end: 20190103

REACTIONS (1)
  - Urticaria [None]

NARRATIVE: CASE EVENT DATE: 20190103
